FAERS Safety Report 7481348-3 (Version None)
Quarter: 2011Q2

REPORT INFORMATION
  Report Type: 
  Country: None (occurrence: None)
  Receive Date: 20110516
  Receipt Date: 20090922
  Transmission Date: 20111010
  Serious: Yes (Death, Hospitalization, Other)
  Sender: FDA-Public Use
  Company Number: US-AMGEN-US365854

PATIENT
  Age: 3 Year
  Sex: Male
  Weight: 15 kg

DRUGS (5)
  1. METHOTREXATE [Concomitant]
     Dosage: UNK UNK, UNK
  2. INFLIXIMAB [Suspect]
     Indication: JUVENILE ARTHRITIS
     Dosage: UNK UNK, QMO
     Route: 042
  3. PREDNISOLONE [Concomitant]
  4. ENBREL [Suspect]
     Indication: JUVENILE ARTHRITIS
     Dosage: UNK UNK, QWK
     Route: 058
     Dates: start: 20080927, end: 20090201
  5. NAPROXEN [Concomitant]

REACTIONS (1)
  - TUBERCULOSIS [None]
